FAERS Safety Report 8645466 (Version 2)
Quarter: 2012Q4

REPORT INFORMATION
  Report Type: 
  Country: JP (occurrence: JP)
  Receive Date: 20120702
  Receipt Date: 20121126
  Transmission Date: 20130627
  Serious: Yes (Hospitalization)
  Sender: FDA-Public Use
  Company Number: JP-BAYER-2012-064545

PATIENT
  Age: 64 Year
  Sex: Male

DRUGS (1)
  1. NEXAVAR [Suspect]
     Indication: CARCINOMA HEPATOCELLULAR
     Dosage: 200 mg, TID
     Route: 048
     Dates: start: 20120110, end: 20120604

REACTIONS (1)
  - Liver abscess [Recovering/Resolving]
